FAERS Safety Report 9116066 (Version 2)
Quarter: 2013Q1

REPORT INFORMATION
  Report Type: Spontaneous
  Country: BR (occurrence: BR)
  Receive Date: 20130225
  Receipt Date: 20130307
  Transmission Date: 20140127
  Serious: Yes (Death)
  Sender: FDA-Public Use
  Company Number: BR-PFIZER INC-2013047128

PATIENT
  Age: 66 Year
  Sex: Female

DRUGS (1)
  1. SUTENT [Suspect]
     Indication: RENAL CELL CARCINOMA
     Dosage: 50 MG, CYCLIC, CYCLE 4 PER 2
     Route: 048
     Dates: start: 20130130

REACTIONS (4)
  - Renal cell carcinoma [Fatal]
  - Disease progression [Fatal]
  - Constipation [Not Recovered/Not Resolved]
  - Osteoporosis [Unknown]
